FAERS Safety Report 4644674-9 (Version None)
Quarter: 2005Q2

REPORT INFORMATION
  Report Type: 
  Country: None (occurrence: None)
  Receive Date: 20050422
  Receipt Date: 20050413
  Transmission Date: 20051028
  Serious: Yes (Hospitalization)
  Sender: FDA-Public Use
  Company Number: 230011M05USA

PATIENT
  Age: 34 Year
  Sex: Female
  Weight: 46.7205 kg

DRUGS (6)
  1. REBIF [Suspect]
     Indication: MULTIPLE SCLEROSIS
     Dosage: 44 MCG, 3 IN 1 WEEKS, SUBCUTANEOUS
     Route: 058
     Dates: start: 20040712, end: 20050107
  2. PAXIL [Concomitant]
  3. ACTONEL [Concomitant]
  4. ORAL CONTRACEPTIVE (ORAL CONTRACEPTIVE NOS) [Concomitant]
  5. PREDNISONE [Concomitant]
  6. IBUPROFEN [Concomitant]

REACTIONS (5)
  - CHROMATURIA [None]
  - FATIGUE [None]
  - HEPATIC FAILURE [None]
  - HEPATITIS ACUTE [None]
  - URINARY TRACT INFECTION [None]
